FAERS Safety Report 4424247-3 (Version None)
Quarter: 2004Q3

REPORT INFORMATION
  Report Type: 
  Country: None (occurrence: None)
  Receive Date: 20040809
  Receipt Date: 20040721
  Transmission Date: 20050211
  Serious: Yes (Other)
  Sender: FDA-Public Use
  Company Number: M2004-1004

PATIENT
  Age: 77 Year
  Sex: Female

DRUGS (2)
  1. RIMACTANE [Suspect]
     Indication: STAPHYLOCOCCAL INFECTION
     Dosage: 600 MG BID
  2. TEICLPLANIN [Suspect]
     Indication: STAPHYLOCOCCAL INFECTION
     Dosage: 600 MG, QD

REACTIONS (4)
  - ANGIONEUROTIC OEDEMA [None]
  - HYPERSENSITIVITY [None]
  - RASH ERYTHEMATOUS [None]
  - WHEEZING [None]
